FAERS Safety Report 16530802 (Version 1)
Quarter: 2019Q3

REPORT INFORMATION
  Report Type: Spontaneous
  Country: US (occurrence: US)
  Receive Date: 20190523
  Receipt Date: 20190523
  Transmission Date: 20191004
  Serious: No
  Sender: FDA-Public Use
  Company Number: None

PATIENT
  Age: 65 Year
  Sex: Female

DRUGS (2)
  1. ENOXAPARIN INJ 80MG/0.8ML [Suspect]
     Active Substance: ENOXAPARIN
     Indication: BREAST CANCER FEMALE
  2. ENOXAPARIN INJ 80MG/0.8ML [Suspect]
     Active Substance: ENOXAPARIN
     Indication: CEREBRAL INFARCTION

REACTIONS (2)
  - Injection site bruising [None]
  - Injection site pain [None]

NARRATIVE: CASE EVENT DATE: 20190523
